FAERS Safety Report 9457705 (Version 1)
Quarter: 2013Q3

REPORT INFORMATION
  Report Type: Spontaneous
  Country: GB (occurrence: None)
  Receive Date: 20130812
  Receipt Date: 20130812
  Transmission Date: 20140515
  Serious: Yes (Hospitalization)
  Sender: FDA-Public Use
  Company Number: AG-2012-0858

PATIENT
  Age: 76 Year
  Sex: Male
  Weight: 75 kg

DRUGS (9)
  1. CHLORAMBUCIL [Suspect]
     Indication: CHRONIC LYMPHOCYTIC LEUKAEMIA
     Dosage: (18 MILLIGRAM, CYCLICAL)
     Route: 048
     Dates: start: 20120323, end: 20120625
  2. OFATUMUMAB [Suspect]
     Indication: CHRONIC LYMPHOCYTIC LEUKAEMIA
     Route: 042
     Dates: start: 20120322, end: 20120619
  3. PARACETAMOL (PARACETAMOL) (UNKNOWN) [Concomitant]
  4. CHLORPHENIRAMINE (DEXCHLORPHENIRAMINE) [Concomitant]
  5. PREDNISOLONE (PREDNISOLONE) [Concomitant]
  6. ALLOPURINOL [Concomitant]
  7. METOCLOPRAMIDE (METOCLOPRAMIDE) [Concomitant]
  8. ACICLOVIR (ACICLOVIR) [Concomitant]
  9. G-CSF (FILGRASTIM) [Concomitant]

REACTIONS (1)
  - Neutropenic sepsis [None]
